FAERS Safety Report 11500496 (Version 1)
Quarter: 2015Q3

REPORT INFORMATION
  Report Type: Spontaneous
  Country: US (occurrence: US)
  Receive Date: 20150914
  Receipt Date: 20150914
  Transmission Date: 20151125
  Serious: No
  Sender: FDA-Public Use
  Company Number: US-PFIZER INC-2015294928

PATIENT
  Sex: Male

DRUGS (1)
  1. GABAPENTIN. [Suspect]
     Active Substance: GABAPENTIN
     Indication: CENTRAL PAIN SYNDROME
     Dosage: 1200 MG, 3X/DAY
     Route: 048
     Dates: end: 201508

REACTIONS (1)
  - Balance disorder [Unknown]
